FAERS Safety Report 7947872-1 (Version None)
Quarter: 2011Q4

REPORT INFORMATION
  Report Type: 
  Country: None (occurrence: None)
  Receive Date: 20111125
  Receipt Date: 20111122
  Transmission Date: 20120403
  Serious: Yes (Hospitalization)
  Sender: FDA-Public Use
  Company Number: 2011SP052260

PATIENT
  Age: 50 Year
  Sex: Male
  Weight: 61 kg

DRUGS (6)
  1. TRUVADA [Concomitant]
  2. REYATAZ [Concomitant]
  3. BOCEPREVIR (SCH-503034) [Suspect]
     Indication: HEPATITIS C
     Dosage: 800 MG;TID
     Dates: start: 20111006
  4. NORVIR [Concomitant]
  5. VIRAFERONPEG [Suspect]
     Indication: HEPATITIS C
     Dosage: 0.5 ML;QW
     Dates: start: 20110909
  6. REBETOL [Suspect]
     Indication: HEPATITIS C
     Dosage: 400 MG;BID
     Dates: start: 20110909

REACTIONS (3)
  - EXCORIATION [None]
  - ERYSIPELAS [None]
  - WOUND INFECTION [None]
